FAERS Safety Report 20393841 (Version 3)
Quarter: 2022Q1

REPORT INFORMATION
  Report Type: Report from Study
  Country: BE (occurrence: BE)
  Receive Date: 20220129
  Receipt Date: 20220211
  Transmission Date: 20220423
  Serious: Yes (Other)
  Sender: FDA-Public Use
  Company Number: BE-ABBVIE-22K-013-4252236-00

PATIENT
  Sex: Male
  Weight: 63 kg

DRUGS (10)
  1. CARBIDOPA\LEVODOPA [Suspect]
     Active Substance: CARBIDOPA\LEVODOPA
     Indication: Parkinson^s disease
     Route: 050
     Dates: start: 20161205
  2. CARBIDOPA\LEVODOPA [Suspect]
     Active Substance: CARBIDOPA\LEVODOPA
     Dosage: MD 7.0 ML; CD 2.4 ML/HR DURING 16HOURS; ED 2.5 ML
     Route: 050
     Dates: start: 20210908, end: 20211026
  3. CARBIDOPA\LEVODOPA [Suspect]
     Active Substance: CARBIDOPA\LEVODOPA
     Dosage: MD 6.0 ML; CD 2.4 ML/HR DURING 16HOURS; ED 2.5 ML
     Route: 050
     Dates: start: 20211026
  4. CERTAIN DRI ROLL-ON [Concomitant]
     Active Substance: ALUMINUM CHLORIDE
     Indication: Product used for unknown indication
  5. STALEVO [Concomitant]
     Active Substance: CARBIDOPA\ENTACAPONE\LEVODOPA
     Indication: Product used for unknown indication
     Dosage: 1.5 UNKNOWN, AT 11:00 AND 14:00 HRS
  6. STALEVO [Concomitant]
     Active Substance: CARBIDOPA\ENTACAPONE\LEVODOPA
     Dosage: AT 17:00 AND 20:00 HRS
  7. STALEVO [Concomitant]
     Active Substance: CARBIDOPA\ENTACAPONE\LEVODOPA
     Dosage: AT 07:00 HRS
  8. VENTOLIN [Concomitant]
     Active Substance: ALBUTEROL SULFATE
     Indication: Product used for unknown indication
  9. VITAMIN B12 [Concomitant]
     Active Substance: CYANOCOBALAMIN
     Indication: Product used for unknown indication
     Dosage: STEROP
     Route: 030
  10. CERTAIN [Concomitant]
     Indication: Product used for unknown indication

REACTIONS (4)
  - Palliative care [Not Recovered/Not Resolved]
  - Dysphagia [Unknown]
  - Device loosening [Unknown]
  - Device dislocation [Unknown]
